FAERS Safety Report 24227342 (Version 9)
Quarter: 2025Q2

REPORT INFORMATION
  Report Type: Report from Study
  Country: US (occurrence: US)
  Receive Date: 20240820
  Receipt Date: 20250605
  Transmission Date: 20250717
  Serious: Yes (Hospitalization)
  Sender: NOVARTIS
  Company Number: US-002147023-NVSC2024US138645

PATIENT
  Age: 67 Year
  Sex: Female

DRUGS (5)
  1. KESIMPTA [Suspect]
     Active Substance: OFATUMUMAB
     Indication: Relapsing multiple sclerosis
     Route: 058
  2. KESIMPTA [Suspect]
     Active Substance: OFATUMUMAB
     Route: 058
  3. KESIMPTA [Suspect]
     Active Substance: OFATUMUMAB
     Route: 058
  4. KESIMPTA [Suspect]
     Active Substance: OFATUMUMAB
     Dosage: 20 MG, QMO
     Route: 058
     Dates: start: 202408
  5. KESIMPTA [Suspect]
     Active Substance: OFATUMUMAB
     Route: 058
     Dates: start: 20240910

REACTIONS (12)
  - Hypoaesthesia [Not Recovered/Not Resolved]
  - Tongue pigmentation [Recovering/Resolving]
  - Musculoskeletal chest pain [Unknown]
  - Malaise [Unknown]
  - Spinal stenosis [Unknown]
  - Scoliosis [Unknown]
  - Injection site bruising [Unknown]
  - Headache [Recovered/Resolved]
  - Influenza like illness [Unknown]
  - Pain [Unknown]
  - Oropharyngeal pain [Unknown]
  - Myalgia [Unknown]

NARRATIVE: CASE EVENT DATE: 20240911
